FAERS Safety Report 7764499-5 (Version None)
Quarter: 2011Q3

REPORT INFORMATION
  Report Type: 
  Country: None (occurrence: None)
  Receive Date: 20110921
  Receipt Date: 20110907
  Transmission Date: 20111222
  Serious: No
  Sender: FDA-Public Use
  Company Number: US-B.I. PHARMACEUTICALS,INC./RIDGEFIELD-2011-BP-14707BP

PATIENT
  Sex: Male

DRUGS (9)
  1. ATENOLOL [Concomitant]
     Indication: ATRIAL FIBRILLATION
     Route: 048
  2. LANOXIN [Concomitant]
     Indication: ATRIAL FIBRILLATION
     Route: 048
  3. FLOMAX [Concomitant]
     Indication: PROSTATIC DISORDER
     Route: 048
  4. PRADAXA [Suspect]
     Indication: ATRIAL FIBRILLATION
     Dosage: 150 MG
     Route: 048
     Dates: start: 20110429
  5. FINASTERIDE [Concomitant]
     Indication: PROSTATIC DISORDER
     Route: 048
  6. HYDROCHLOROTHIAZIDE [Concomitant]
     Indication: OEDEMA
     Route: 048
  7. VITAMIN B1 TAB [Concomitant]
     Indication: ROUTINE HEALTH MAINTENANCE
     Route: 048
  8. FOLIC ACID [Concomitant]
     Indication: ROUTINE HEALTH MAINTENANCE
     Route: 048
  9. LORTAB [Concomitant]
     Indication: SPINAL COLUMN STENOSIS
     Route: 048

REACTIONS (2)
  - LETHARGY [None]
  - DIZZINESS [None]
